FAERS Safety Report 5040562-7 (Version None)
Quarter: 2006Q2

REPORT INFORMATION
  Report Type: 
  Country: None (occurrence: None)
  Receive Date: 20060627
  Receipt Date: 20060627
  Transmission Date: 20061013
  Serious: Yes (Hospitalization, Disabling)
  Sender: FDA-Public Use
  Company Number: None

PATIENT
  Age: 37 Year
  Sex: Female
  Weight: 97.5234 kg

DRUGS (1)
  1. CEFAZOLIN HANFORD PHARMACEUTICALS [Suspect]
     Indication: SURGERY
     Dosage: IV DRIP
     Route: 041
     Dates: start: 20051207, end: 20051207

REACTIONS (7)
  - ABDOMINAL ABSCESS [None]
  - ABDOMINAL INFECTION [None]
  - ASTHENIA [None]
  - HYSTERECTOMY [None]
  - LETHARGY [None]
  - NAUSEA [None]
  - POSTOPERATIVE INFECTION [None]
